FAERS Safety Report 10183007 (Version 1)
Quarter: 2014Q2

REPORT INFORMATION
  Report Type: Spontaneous
  Country: US (occurrence: US)
  Receive Date: 20140520
  Receipt Date: 20140520
  Transmission Date: 20141212
  Serious: No
  Sender: FDA-Public Use
  Company Number: US-PFIZER INC-2014136066

PATIENT
  Age: 80 Year
  Sex: Female

DRUGS (4)
  1. LYRICA [Suspect]
     Indication: CONVULSION
     Dosage: 250 MG, DAILY
     Dates: end: 2014
  2. CIPRO [Concomitant]
     Dosage: 250 MG, DAILY
     Dates: start: 20140501
  3. CLONAZEPAM [Concomitant]
     Dosage: 0.5 MG, 2X/DAY
     Dates: start: 20140205
  4. FLUOXETINE [Concomitant]
     Dosage: 60 MG, DAILY

REACTIONS (2)
  - Depression [Not Recovered/Not Resolved]
  - Crying [Not Recovered/Not Resolved]
